FAERS Safety Report 7964120-7 (Version None)
Quarter: 2011Q4

REPORT INFORMATION
  Report Type: 
  Country: None (occurrence: None)
  Receive Date: 20111206
  Receipt Date: 20111122
  Transmission Date: 20120403
  Serious: Yes (Hospitalization)
  Sender: FDA-Public Use
  Company Number: 1000023584

PATIENT
  Age: 59 Year
  Sex: Female

DRUGS (6)
  1. MILNACIPRAN (MILNACIPRAN HYDROCHLORIDE) (50 MILLIGRAM, CAPSULES) [Suspect]
     Indication: BIPOLAR DISORDER
     Dosage: 150 MG (50 MG, 3 IN 1 D), ORAL
     Route: 048
     Dates: start: 20110713, end: 20110717
  2. KARDEGIC (ACETYLSALICYLATE LYSINE) (ACETYLSALICYLATE LYSINE) [Concomitant]
  3. TERCIAN (CYAMEMAZINE) (25 MILLIGRAM) [Suspect]
     Dosage: ORAL
     Route: 048
     Dates: end: 20110704
  4. ESCITALOPRAM [Concomitant]
  5. MILNACIPRAN (MILNACIPRAN HYDROCHLORIDE) (50 MILLIGRAM, CAPSULES) [Suspect]
     Indication: BIPOLAR DISORDER
     Dosage: ORAL
     Route: 048
     Dates: end: 20110704
  6. TERCIAN (CYAMEMAZINE) (25 MILLIGRAM) [Suspect]
     Dosage: ORAL
     Route: 048
     Dates: start: 20110708, end: 20110711

REACTIONS (6)
  - ILEUS [None]
  - OESOPHAGITIS [None]
  - MEGACOLON [None]
  - LEUKOCYTOSIS [None]
  - IMPAIRED GASTRIC EMPTYING [None]
  - SHOCK [None]
